FAERS Safety Report 8318512-7 (Version None)
Quarter: 2012Q2

REPORT INFORMATION
  Report Type: 
  Country: None (occurrence: None)
  Receive Date: 20120427
  Receipt Date: 20120424
  Transmission Date: 20120825
  Serious: Yes (Hospitalization)
  Sender: FDA-Public Use
  Company Number: US-GLAXOSMITHKLINE-A0975175A

PATIENT
  Age: 60 Year
  Sex: Female
  Weight: 73 kg

DRUGS (8)
  1. PAROXETINE [Suspect]
     Indication: DEPRESSION
     Dates: start: 20040201
  2. EPOPROSTENOL SODIUM [Suspect]
     Dates: start: 20100715
  3. SILDENAFIL [Concomitant]
     Dates: start: 20051019
  4. INVESTIGATIONAL DRUG [Suspect]
     Indication: PULMONARY ARTERIAL HYPERTENSION
     Dosage: 150MG TWICE PER DAY
     Route: 048
     Dates: start: 20101026
  5. DIGOXIN [Concomitant]
     Dates: start: 20041109
  6. LEVAQUIN [Concomitant]
     Dates: start: 20110926
  7. METHIMAZOLE [Concomitant]
     Dates: start: 20100601
  8. LINEZOLID [Suspect]
     Indication: BLOOD CULTURE POSITIVE
     Dosage: 600MG TWICE PER DAY
     Dates: start: 20110928, end: 20111005

REACTIONS (2)
  - SEROTONIN SYNDROME [None]
  - SEPSIS [None]
